FAERS Safety Report 8311360-3 (Version None)
Quarter: 2012Q2

REPORT INFORMATION
  Report Type: 
  Country: None (occurrence: None)
  Receive Date: 20120425
  Receipt Date: 20120416
  Transmission Date: 20120825
  Serious: Yes (Other)
  Sender: FDA-Public Use
  Company Number: CHPA2012US006496

PATIENT
  Age: 58 Year
  Sex: Female

DRUGS (1)
  1. NODOZ [Suspect]
     Indication: INSOMNIA
     Dosage: 2 DF, PRN
     Route: 048
     Dates: end: 20120201

REACTIONS (4)
  - RASH [None]
  - INCORRECT DOSE ADMINISTERED [None]
  - PRURITUS [None]
  - OFF LABEL USE [None]
